FAERS Safety Report 16044195 (Version 1)
Quarter: 2019Q1

REPORT INFORMATION
  Report Type: Spontaneous
  Country: ES (occurrence: ES)
  Receive Date: 20190306
  Receipt Date: 20190306
  Transmission Date: 20190418
  Serious: Yes (Other)
  Sender: FDA-Public Use
  Company Number: ES-BAUSCH-BL-2019-006856

PATIENT
  Sex: Female

DRUGS (1)
  1. SPIRAXIN 200 MG FILM-COATED TABLETS [Suspect]
     Active Substance: RIFAXIMIN
     Indication: DIVERTICULUM
     Route: 048

REACTIONS (2)
  - Diverticulum [Unknown]
  - Condition aggravated [Unknown]
